FAERS Safety Report 15020555 (Version 1)
Quarter: 2018Q2

REPORT INFORMATION
  Report Type: Spontaneous
  Country: US (occurrence: US)
  Receive Date: 20180618
  Receipt Date: 20180618
  Transmission Date: 20180711
  Serious: No
  Sender: FDA-Public Use
  Company Number: US-MALLINCKRODT-T201702191

PATIENT
  Age: 56 Year
  Sex: Male
  Weight: 112 kg

DRUGS (1)
  1. HYDROCODONE/ACETAMINOPHEN [Suspect]
     Active Substance: ACETAMINOPHEN\HYDROCODONE
     Indication: BACK PAIN
     Dosage: 10/325 MG, 1-2 TABLETS QID
     Route: 048

REACTIONS (12)
  - Disorientation [Unknown]
  - Flushing [Unknown]
  - Feeling hot [Unknown]
  - Therapy cessation [Unknown]
  - Hypertension [Unknown]
  - Fall [Unknown]
  - Drug withdrawal syndrome [Unknown]
  - Back injury [Unknown]
  - Product quality issue [Unknown]
  - Tinnitus [Unknown]
  - Loss of control of legs [Unknown]
  - Sensory disturbance [Unknown]

NARRATIVE: CASE EVENT DATE: 201705
